FAERS Safety Report 6037735-3 (Version None)
Quarter: 2009Q1

REPORT INFORMATION
  Report Type: 
  Country: None (occurrence: None)
  Receive Date: 20090113
  Receipt Date: 20090102
  Transmission Date: 20090719
  Serious: Yes (Other)
  Sender: FDA-Public Use
  Company Number: 231777K08USA

PATIENT
  Age: 39 Year
  Sex: Female
  Weight: 59 kg

DRUGS (6)
  1. REBIF [Suspect]
     Indication: MULTIPLE SCLEROSIS
     Dosage: 44 MCG, 3 IN 1 WEEKS, SUBCUTANEOUS
     Route: 058
     Dates: start: 20060801
  2. TYLENOL (COTYLENOL) [Concomitant]
  3. CYMBALTA [Concomitant]
  4. NEURONTIN [Concomitant]
  5. AMANTADINE HCL [Concomitant]
  6. PREVACID [Concomitant]

REACTIONS (4)
  - FACIAL PALSY [None]
  - FATIGUE [None]
  - MYOCLONIC EPILEPSY [None]
  - MYOCLONUS [None]
